FAERS Safety Report 20505798 (Version 2)
Quarter: 2022Q1

REPORT INFORMATION
  Report Type: Spontaneous
  Country: US (occurrence: US)
  Receive Date: 20220223
  Receipt Date: 20220331
  Transmission Date: 20220424
  Serious: No
  Sender: FDA-Public Use
  Company Number: US-AIMMUNE THERAPEUTICS, INC.-2022AIMT00124

PATIENT

DRUGS (4)
  1. PALFORZIA [Suspect]
     Active Substance: PEANUT
     Indication: Food allergy
     Dosage: 40 MG, 1X/DAY
     Route: 048
     Dates: start: 20220202, end: 20220204
  2. PALFORZIA [Suspect]
     Active Substance: PEANUT
     Dosage: 40 MG, ONCE, LAST DOSE PRIOR ABDOMINAL PAIN AND HIVES
     Route: 048
     Dates: start: 20220208, end: 20220208
  3. PALFORZIA [Suspect]
     Active Substance: PEANUT
     Dosage: 20 MG, 1X/DAY, DOSE DECREASED
     Route: 048
     Dates: start: 20220209, end: 20220213
  4. PALFORZIA [Suspect]
     Active Substance: PEANUT
     Dosage: 40 MG, 1X/DAY, RE-UPDOSE
     Route: 048
     Dates: start: 20220214

REACTIONS (5)
  - COVID-19 [Recovered/Resolved]
  - Asthma [Recovered/Resolved]
  - Drug monitoring procedure incorrectly performed [Recovered/Resolved]
  - Abdominal pain [Recovered/Resolved]
  - Urticaria [Recovered/Resolved]

NARRATIVE: CASE EVENT DATE: 20220204
